FAERS Safety Report 23825837 (Version 1)
Quarter: 2024Q2

REPORT INFORMATION
  Report Type: Spontaneous
  Country: CN (occurrence: None)
  Receive Date: 20240507
  Receipt Date: 20240507
  Transmission Date: 20240716
  Serious: Yes (Hospitalization)
  Sender: FDA-Public Use
  Company Number: CN-ROCHE-3553574

PATIENT
  Age: 68 Year
  Sex: Male

DRUGS (8)
  1. AVASTIN [Suspect]
     Active Substance: BEVACIZUMAB
     Indication: Lung carcinoma cell type unspecified stage IV
     Route: 065
     Dates: start: 20190225
  2. AVASTIN [Suspect]
     Active Substance: BEVACIZUMAB
     Indication: Metastases to central nervous system
  3. PEMETREXED [Concomitant]
     Active Substance: PEMETREXED
     Indication: Lung carcinoma cell type unspecified stage IV
     Dates: start: 20190225
  4. PEMETREXED [Concomitant]
     Active Substance: PEMETREXED
     Indication: Metastases to central nervous system
  5. CARBOPLATIN [Concomitant]
     Active Substance: CARBOPLATIN
     Indication: Lung carcinoma cell type unspecified stage IV
     Dates: start: 20190225
  6. CARBOPLATIN [Concomitant]
     Active Substance: CARBOPLATIN
     Indication: Metastases to central nervous system
  7. AFATINIB [Concomitant]
     Active Substance: AFATINIB
     Indication: Lung carcinoma cell type unspecified stage IV
     Route: 048
  8. AFATINIB [Concomitant]
     Active Substance: AFATINIB
     Indication: Metastases to central nervous system

REACTIONS (5)
  - Dizziness [Unknown]
  - Ill-defined disorder [Unknown]
  - Neoplasm progression [Unknown]
  - Gene mutation [Unknown]
  - Disease progression [Unknown]
